FAERS Safety Report 5735410-3 (Version None)
Quarter: 2008Q2

REPORT INFORMATION
  Report Type: 
  Country: None (occurrence: None)
  Receive Date: 20080508
  Receipt Date: 20080508
  Transmission Date: 20081010
  Serious: Yes (Other)
  Sender: FDA-Public Use
  Company Number: None

PATIENT
  Age: 62 Year
  Sex: Female
  Weight: 74.8435 kg

DRUGS (1)
  1. CREST PRO HEALTH RINSE BLUE IN COLOR PROCTOR + GAMBLE [Suspect]
     Dosage: RINSE AFTER BRUSHING PO
     Route: 048
     Dates: start: 20070407, end: 20070519

REACTIONS (2)
  - MEDICATION RESIDUE [None]
  - TOOTH DISCOLOURATION [None]
